FAERS Safety Report 9885122 (Version 1)
Quarter: 2014Q1

REPORT INFORMATION
  Report Type: Spontaneous
  Country: US (occurrence: US)
  Receive Date: 20140210
  Receipt Date: 20140210
  Transmission Date: 20141002
  Serious: Yes (Death, Other)
  Sender: FDA-Public Use
  Company Number: US-MALLINCKRODT-T201400924

PATIENT
  Age: 24 Year
  Sex: Male

DRUGS (1)
  1. MORPHINE [Suspect]
     Indication: PRODUCT USED FOR UNKNOWN INDICATION
     Route: 048

REACTIONS (15)
  - Drug abuse [Fatal]
  - Brain death [Fatal]
  - Grand mal convulsion [Unknown]
  - Hyperhidrosis [Unknown]
  - Unresponsive to stimuli [Unknown]
  - Cyanosis [Unknown]
  - Pyrexia [Unknown]
  - Renal failure acute [Unknown]
  - Ischaemic hepatitis [Unknown]
  - Hypoglycaemia [Unknown]
  - Coagulopathy [Unknown]
  - Brain oedema [Unknown]
  - Brain herniation [Unknown]
  - Pulmonary oedema [Unknown]
  - Papillary muscle infarction [Unknown]
